FAERS Safety Report 20896749 (Version 1)
Quarter: 2022Q2

REPORT INFORMATION
  Report Type: Spontaneous
  Country: US (occurrence: None)
  Receive Date: 20220530
  Receipt Date: 20220530
  Transmission Date: 20220721
  Serious: No
  Sender: FDA-Public Use
  Company Number: None

PATIENT
  Age: 32 Year
  Sex: Male
  Weight: 65.25 kg

DRUGS (1)
  1. LAMOTRIGINE [Suspect]
     Active Substance: LAMOTRIGINE
     Indication: Anxiety
     Dosage: OTHER QUANTITY : 1 TABLET(S);?FREQUENCY : DAILY;?
     Route: 048
     Dates: start: 20220323, end: 20220515

REACTIONS (5)
  - Product substitution issue [None]
  - Anxiety [None]
  - Symptom recurrence [None]
  - Therapeutic response changed [None]
  - Drug ineffective [None]

NARRATIVE: CASE EVENT DATE: 20220415
